FAERS Safety Report 19907750 (Version 1)
Quarter: 2021Q4

REPORT INFORMATION
  Report Type: Spontaneous
  Country: DE (occurrence: DE)
  Receive Date: 20211001
  Receipt Date: 20211001
  Transmission Date: 20220303
  Serious: Yes (Other)
  Sender: FDA-Public Use
  Company Number: DE-DCGMA-21191378

PATIENT
  Age: 79 Year
  Sex: Male

DRUGS (2)
  1. SIMVASTATIN [Suspect]
     Active Substance: SIMVASTATIN
     Dates: start: 200411, end: 200701
  2. ATORVASTATIN [Suspect]
     Active Substance: ATORVASTATIN
     Dates: start: 200411, end: 200701

REACTIONS (2)
  - Polyneuropathy [Unknown]
  - Acquired claw toe [Unknown]

NARRATIVE: CASE EVENT DATE: 20070101
